FAERS Safety Report 6594798-4 (Version None)
Quarter: 2010Q1

REPORT INFORMATION
  Report Type: 
  Country: None (occurrence: None)
  Receive Date: 20100222
  Receipt Date: 20100208
  Transmission Date: 20100710
  Serious: No
  Sender: FDA-Public Use
  Company Number: YU-MYLANLABS-2010S1002202

PATIENT
  Age: 22 Month
  Sex: Female

DRUGS (1)
  1. DICLOFENAC [Suspect]
     Indication: ABDOMINAL PAIN
     Route: 064

REACTIONS (7)
  - ANAL STENOSIS [None]
  - APLASIA CUTIS CONGENITA [None]
  - CONGENITAL JOINT MALFORMATION [None]
  - DRUG EXPOSURE DURING PREGNANCY [None]
  - EYE MOVEMENT DISORDER [None]
  - FLOPPY INFANT [None]
  - FOOT DEFORMITY [None]
